FAERS Safety Report 25110615 (Version 1)
Quarter: 2025Q1

REPORT INFORMATION
  Report Type: Spontaneous
  Country: CN (occurrence: CN)
  Receive Date: 20250324
  Receipt Date: 20250324
  Transmission Date: 20250408
  Serious: Yes (Other)
  Sender: SANOFI AVENTIS
  Company Number: CN-SA-2025SA082833

PATIENT
  Age: 76 Year
  Sex: Female
  Weight: 37.8 kg

DRUGS (1)
  1. INSULIN GLARGINE [Suspect]
     Active Substance: INSULIN GLARGINE
     Indication: Blood glucose increased
     Dosage: 12 IU, QD
     Route: 058
     Dates: start: 20250310, end: 20250311

REACTIONS (5)
  - Dizziness [Recovering/Resolving]
  - Palpitations [Recovering/Resolving]
  - Dry skin [Recovering/Resolving]
  - Feeling hot [Recovering/Resolving]
  - Abdominal pain [Recovering/Resolving]

NARRATIVE: CASE EVENT DATE: 20250311
